FAERS Safety Report 9208884 (Version 1)
Quarter: 2013Q1

REPORT INFORMATION
  Report Type: Spontaneous
  Country: US (occurrence: None)
  Receive Date: 20120820
  Receipt Date: 20120820
  Transmission Date: 20140127
  Serious: Yes (Other)
  Sender: FDA-Public Use
  Company Number: USA/USA/12/0025150

PATIENT
  Age: 68 Year
  Sex: Male

DRUGS (2)
  1. GEMCITABINE FOR INJECTION (1 GRAM LYOPHILIZED POWDER IN A STERILE SINGLE-USE VIAL) (GEMCITABINE) [Suspect]
     Indication: BLADDER CANCER
  2. CISPLATIN (CISPLATIN) [Suspect]

REACTIONS (2)
  - Acute pulmonary oedema [None]
  - Pneumonitis [None]
